FAERS Safety Report 17077750 (Version 1)
Quarter: 2019Q4

REPORT INFORMATION
  Report Type: Report from Study
  Country: US (occurrence: US)
  Receive Date: 20191126
  Receipt Date: 20191126
  Transmission Date: 20200122
  Serious: Yes (Hospitalization)
  Sender: FDA-Public Use
  Company Number: NVSC2019US033719

PATIENT
  Age: 68 Year
  Sex: Male
  Weight: 101.1 kg

DRUGS (3)
  1. MEKINIST [Suspect]
     Active Substance: TRAMETINIB DIMETHYL SULFOXIDE
     Indication: MALIGNANT MELANOMA
     Dosage: UNK, QD (LATE SPRING OR EARLY SUMMER 2017 TO CHRISTMAS 2018)
     Route: 048
     Dates: start: 2017, end: 201812
  2. COUMADIN [Concomitant]
     Active Substance: WARFARIN SODIUM
     Indication: PRODUCT USED FOR UNKNOWN INDICATION
     Route: 065
  3. TAFINLAR [Suspect]
     Active Substance: DABRAFENIB MESYLATE
     Indication: MALIGNANT MELANOMA
     Dosage: UNK, BID (LATE SPRING OR EARLY SUMMER 2017 TO CHRISTMAS 2018)
     Route: 048
     Dates: start: 2017, end: 201812

REACTIONS (5)
  - Renal failure [Recovered/Resolved]
  - Acrochordon [Recovered/Resolved]
  - Tachycardia [Recovered/Resolved]
  - Pyrexia [Recovered/Resolved]
  - Diarrhoea [Recovered/Resolved]

NARRATIVE: CASE EVENT DATE: 2018
